FAERS Safety Report 15778229 (Version 6)
Quarter: 2019Q2

REPORT INFORMATION
  Report Type: Report from Study
  Country: US (occurrence: US)
  Receive Date: 20181231
  Receipt Date: 20190513
  Transmission Date: 20190711
  Serious: Yes (Death, Hospitalization)
  Sender: FDA-Public Use
  Company Number: US-ACTELION-A-NJ2018-183712

PATIENT
  Sex: Female

DRUGS (1)
  1. OPSUMIT [Suspect]
     Active Substance: MACITENTAN
     Indication: PULMONARY ARTERIAL HYPERTENSION
     Dosage: 10 MG, QD
     Route: 048
     Dates: start: 20170721

REACTIONS (6)
  - Malaise [Unknown]
  - Death [Fatal]
  - Cardiac pacemaker insertion [Unknown]
  - Hospitalisation [Not Recovered/Not Resolved]
  - Fluid retention [Unknown]
  - Fall [Unknown]
